FAERS Safety Report 16305827 (Version 3)
Quarter: 2019Q2

REPORT INFORMATION
  Report Type: Spontaneous
  Country: US (occurrence: US)
  Receive Date: 20190513
  Receipt Date: 20190521
  Transmission Date: 20190711
  Serious: Yes (Hospitalization)
  Sender: FDA-Public Use
  Company Number: US-AMREGENT-20170139

PATIENT
  Age: 71 Year
  Sex: Male
  Weight: 69 kg

DRUGS (21)
  1. VENOFER [Suspect]
     Active Substance: IRON SUCROSE
     Dosage: 100 MG
     Route: 040
     Dates: start: 20131018
  2. FINASTERIDE. [Concomitant]
     Active Substance: FINASTERIDE
     Dosage: 5 MG
     Route: 065
  3. NOVASOURCE RENAL [Concomitant]
     Dosage: UNKNOWN
     Route: 065
  4. AMIODARONE [Concomitant]
     Active Substance: AMIODARONE
     Dosage: 200 MG
     Route: 065
  5. AMOXICILLIN. [Concomitant]
     Active Substance: AMOXICILLIN
     Dosage: 500 MG
     Route: 065
  6. SEROQUEL [Concomitant]
     Active Substance: QUETIAPINE FUMARATE
     Dosage: 25 MG
     Route: 065
  7. VELPHORO [Suspect]
     Active Substance: FERRIC OXYHYDROXIDE
     Dosage: 500 MG
     Route: 048
  8. ACETAMINOPHEN. [Concomitant]
     Active Substance: ACETAMINOPHEN
     Dosage: 325 MG
     Route: 065
  9. DEPAKOTE [Concomitant]
     Active Substance: DIVALPROEX SODIUM
     Dosage: 500 MG
     Route: 065
  10. METOPROLOL TARTRATE. [Concomitant]
     Active Substance: METOPROLOL TARTRATE
     Dosage: 25 MG
     Route: 065
  11. MIDODRINE [Concomitant]
     Active Substance: MIDODRINE
     Dosage: 5 MG
     Route: 065
  12. RENVELA [Concomitant]
     Active Substance: SEVELAMER CARBONATE
     Dosage: 0.8 GM
     Route: 065
  13. ASPIRIN. [Concomitant]
     Active Substance: ASPIRIN
     Dosage: 81 MG
     Route: 065
  14. MILK OF MAGNESIA [Concomitant]
     Active Substance: MAGNESIUM HYDROXIDE
     Dosage: 400 MG
     Route: 065
  15. NEPHRO-VITE [Concomitant]
     Dosage: 1MG, 60- MG,300- MCG
     Route: 065
  16. SENSIPAR [Concomitant]
     Active Substance: CINACALCET HYDROCHLORIDE
     Dosage: 30 MG
     Route: 065
  17. MIRCERA [Suspect]
     Active Substance: METHOXY POLYETHYLENE GLYCOL-EPOETIN BETA
     Dosage: 200 MCG, 1 IN 2 WK
     Route: 040
     Dates: start: 20150211
  18. HECTOROL [Concomitant]
     Active Substance: DOXERCALCIFEROL
     Dosage: UNKNOWN
     Route: 065
  19. BISACODYL. [Concomitant]
     Active Substance: BISACODYL
     Dosage: 5 MG
     Route: 065
  20. ZANTAC [Concomitant]
     Active Substance: RANITIDINE HYDROCHLORIDE
     Dosage: 150 MG
     Route: 065
  21. HEPARIN [Concomitant]
     Active Substance: HEPARIN SODIUM
     Dosage: UNKNOWN
     Route: 040

REACTIONS (17)
  - Injection site bruising [Unknown]
  - Hospitalisation [Unknown]
  - Thrombocytopenia [Unknown]
  - Hepatic infection [Unknown]
  - Activated partial thromboplastin time prolonged [Unknown]
  - Atelectasis [Unknown]
  - Lung infiltration [Unknown]
  - Lymphadenopathy [Unknown]
  - Asthenia [Unknown]
  - Pleural effusion [Unknown]
  - Cardiomegaly [Unknown]
  - Motor dysfunction [Unknown]
  - Hepatic lesion [Unknown]
  - Rash [Recovered/Resolved]
  - Haemoglobin decreased [Unknown]
  - Skin lesion [Recovering/Resolving]
  - Coordination abnormal [Unknown]

NARRATIVE: CASE EVENT DATE: 2015
